FAERS Safety Report 10398080 (Version 3)
Quarter: 2016Q4

REPORT INFORMATION
  Report Type: Spontaneous
  Country: US (occurrence: US)
  Receive Date: 20140821
  Receipt Date: 20161017
  Transmission Date: 20170206
  Serious: No
  Sender: FDA-Public Use
  Company Number: US-ALEXION-A201400055

PATIENT

DRUGS (2)
  1. SOLIRIS [Suspect]
     Active Substance: ECULIZUMAB
     Indication: OFF LABEL USE
  2. SOLIRIS [Suspect]
     Active Substance: ECULIZUMAB
     Indication: THROMBOTIC MICROANGIOPATHY
     Dosage: UNK
     Route: 042

REACTIONS (3)
  - Inappropriate schedule of drug administration [Recovered/Resolved]
  - Incorrect dose administered [Recovered/Resolved]
  - Off label use [Unknown]
